FAERS Safety Report 5391739-2 (Version None)
Quarter: 2007Q3

REPORT INFORMATION
  Report Type: 
  Country: None (occurrence: None)
  Receive Date: 20070717
  Receipt Date: 20070703
  Transmission Date: 20080115
  Serious: Yes (Death)
  Sender: FDA-Public Use
  Company Number: CERZ-11779

PATIENT
  Age: 3 Year
  Sex: Male
  Weight: 9.1 kg

DRUGS (1)
  1. CEREZYME [Suspect]
     Indication: GAUCHER'S DISEASE
     Dosage: 60 U/KG Q2WKS IV
     Route: 042
     Dates: start: 20050419, end: 20070605

REACTIONS (2)
  - BRONCHOPNEUMONIA [None]
  - RESPIRATORY DISTRESS [None]
